FAERS Safety Report 7377992-4 (Version None)
Quarter: 2011Q1

REPORT INFORMATION
  Report Type: 
  Country: None (occurrence: None)
  Receive Date: 20110328
  Receipt Date: 20110315
  Transmission Date: 20110831
  Serious: Yes (Other)
  Sender: FDA-Public Use
  Company Number: PHHY2010DE19544

PATIENT
  Age: 76 Year
  Sex: Male

DRUGS (1)
  1. EXELON [Suspect]
     Dosage: 4.6 MG/24 H, ONCE/SINGLE
     Route: 062

REACTIONS (2)
  - DIARRHOEA [None]
  - SYNCOPE [None]
